FAERS Safety Report 10026963 (Version 1)
Quarter: 2014Q1

REPORT INFORMATION
  Report Type: Spontaneous
  Country: FR (occurrence: None)
  Receive Date: 20140318
  Receipt Date: 20140318
  Transmission Date: 20141002
  Serious: Yes (Life-Threatening)
  Sender: FDA-Public Use
  Company Number: AUR-APL-2014-02714

PATIENT
  Age: 71 Year
  Sex: Female

DRUGS (10)
  1. RAMIPRIL [Suspect]
     Indication: PRODUCT USED FOR UNKNOWN INDICATION
     Dosage: 1 D
     Route: 048
  2. LASILIX (FUROSEMIDE) [Suspect]
     Indication: PRODUCT USED FOR UNKNOWN INDICATION
     Dosage: 1 D
     Route: 048
  3. LODOZ [Suspect]
     Indication: HYPERTENSION
     Dosage: 1 D
     Route: 048
  4. GLUCOPHAGE [Suspect]
     Indication: TYPE 2 DIABETES MELLITUS
     Dosage: 1 DOSAGE FORMS, 3 IN 1 D
     Route: 048
     Dates: end: 20131011
  5. JANUVIA [Concomitant]
  6. CORDARONE [Concomitant]
  7. LEVOTHYROX [Concomitant]
  8. SPIRIVA [Concomitant]
  9. VOGALENE [Concomitant]
  10. PREVISCAN [Concomitant]

REACTIONS (10)
  - Lactic acidosis [None]
  - Renal failure acute [None]
  - Nausea [None]
  - Hypophagia [None]
  - General physical health deterioration [None]
  - Hypotension [None]
  - Hypothermia [None]
  - Tachypnoea [None]
  - Urinary tract infection [None]
  - Dialysis [None]
